FAERS Safety Report 7571396-7 (Version None)
Quarter: 2011Q2

REPORT INFORMATION
  Report Type: 
  Country: None (occurrence: None)
  Receive Date: 20110624
  Receipt Date: 20110623
  Transmission Date: 20111010
  Serious: Yes (Other)
  Sender: FDA-Public Use
  Company Number: US-PFIZER INC-2011140172

PATIENT
  Sex: Male
  Weight: 102 kg

DRUGS (3)
  1. CHANTIX [Suspect]
     Indication: SMOKING CESSATION THERAPY
     Dosage: 0.5 MG DAILY
     Route: 048
     Dates: start: 20110601, end: 20110601
  2. AVAPRO [Concomitant]
     Indication: BLOOD PRESSURE ABNORMAL
     Dosage: 300 MG, 2X/DAY
     Route: 048
  3. CHANTIX [Suspect]
     Dosage: UNK
     Route: 048
     Dates: start: 20110601

REACTIONS (1)
  - BLOOD PRESSURE INCREASED [None]
